FAERS Safety Report 24381357 (Version 2)
Quarter: 2024Q4

REPORT INFORMATION
  Report Type: Spontaneous
  Country: IT (occurrence: IT)
  Receive Date: 20241001
  Receipt Date: 20241203
  Transmission Date: 20250115
  Serious: Yes (Other)
  Sender: ALEXION PHARMACEUTICALS
  Company Number: None

PATIENT

DRUGS (10)
  1. SELUMETINIB [Suspect]
     Active Substance: SELUMETINIB
     Indication: Neurofibromatosis
     Dosage: 20 MILLIGRAM, BID
  2. SELUMETINIB [Suspect]
     Active Substance: SELUMETINIB
     Dosage: 20 MILLIGRAM, BID
  3. SELUMETINIB [Suspect]
     Active Substance: SELUMETINIB
     Dosage: 20 MILLIGRAM, BID
  4. SELUMETINIB [Suspect]
     Active Substance: SELUMETINIB
     Dosage: 20 MILLIGRAM, BID
  5. SELUMETINIB [Suspect]
     Active Substance: SELUMETINIB
     Dosage: 25 MILLIGRAM, BID
  6. SELUMETINIB [Suspect]
     Active Substance: SELUMETINIB
     Dosage: 25 MILLIGRAM, BID
  7. SELUMETINIB [Suspect]
     Active Substance: SELUMETINIB
     Dosage: 25 MILLIGRAM, BID
  8. SELUMETINIB [Suspect]
     Active Substance: SELUMETINIB
     Dosage: 25 MILLIGRAM, BID
  9. CHOLECALCIFEROL [Concomitant]
     Active Substance: CHOLECALCIFEROL
     Indication: Hypovitaminosis
     Dosage: 25000 IU INTERNATIONAL UNIT(S), QW
  10. CHOLECALCIFEROL [Concomitant]
     Active Substance: CHOLECALCIFEROL
     Dosage: 25000 IU INTERNATIONAL UNIT(S), QW
     Route: 065

REACTIONS (2)
  - Retinal detachment [Recovering/Resolving]
  - Paronychia [Recovering/Resolving]
